FAERS Safety Report 8492045-X (Version None)
Quarter: 2012Q2

REPORT INFORMATION
  Report Type: 
  Country: None (occurrence: None)
  Receive Date: 20120627
  Receipt Date: 20120607
  Transmission Date: 20120825
  Serious: Yes (Other)
  Sender: FDA-Public Use
  Company Number: 20120374

PATIENT
  Age: 36 Year
  Sex: Female

DRUGS (1)
  1. PROGESTERONE INJ [Suspect]
     Indication: PRODUCT USED FOR UNKNOWN INDICATION
     Dosage: DAILY (DURING 4TH IVF) CYCLE INJECTION NOS

REACTIONS (4)
  - URTICARIA [None]
  - ANAPHYLACTIC REACTION [None]
  - ANGIOEDEMA [None]
  - MATERNAL EXPOSURE BEFORE PREGNANCY [None]
